FAERS Safety Report 10792589 (Version 1)
Quarter: 2015Q1

REPORT INFORMATION
  Report Type: Spontaneous
  Country: SG (occurrence: SG)
  Receive Date: 20150213
  Receipt Date: 20150213
  Transmission Date: 20150721
  Serious: Yes (Hospitalization)
  Sender: FDA-Public Use
  Company Number: SG-AUROBINDO-AUR-APL-2015-01106

PATIENT
  Age: 44 Year
  Sex: Male

DRUGS (2)
  1. CLARITHROMYCIN. [Suspect]
     Active Substance: CLARITHROMYCIN
     Indication: LOWER RESPIRATORY TRACT INFECTION
     Dosage: UNK
     Route: 048
  2. LEVOFLOXACIN. [Suspect]
     Active Substance: LEVOFLOXACIN
     Indication: LOWER RESPIRATORY TRACT INFECTION
     Dosage: UNK
     Route: 065

REACTIONS (8)
  - Loss of consciousness [Recovered/Resolved]
  - Torsade de pointes [Recovered/Resolved]
  - Eye movement disorder [Recovered/Resolved]
  - Electrocardiogram T wave inversion [Recovered/Resolved]
  - Generalised tonic-clonic seizure [Recovered/Resolved]
  - Ventricular tachycardia [Recovered/Resolved]
  - Electrocardiogram QT prolonged [Recovered/Resolved]
  - Ventricular fibrillation [Recovered/Resolved]
